FAERS Safety Report 17703284 (Version 1)
Quarter: 2020Q2

REPORT INFORMATION
  Report Type: Spontaneous
  Country: CA (occurrence: CA)
  Receive Date: 20200424
  Receipt Date: 20200424
  Transmission Date: 20200714
  Serious: Yes (Hospitalization, Other)
  Sender: FDA-Public Use
  Company Number: CA-BION-008658

PATIENT
  Age: 27 Month
  Sex: Male
  Weight: 15.7 kg

DRUGS (5)
  1. VALPROIC ACID. [Suspect]
     Active Substance: VALPROIC ACID
     Indication: EPILEPSY
     Dosage: INCREASED FROM 250 MG TO 300 MG TWICE DAILY (APPROXIMATELY 38 MG/KG/DAY)
  2. CLOBAZAM. [Concomitant]
     Active Substance: CLOBAZAM
     Indication: EPILEPSY
     Route: 048
  3. LEVETIRACETAM. [Concomitant]
     Active Substance: LEVETIRACETAM
     Indication: EPILEPSY
  4. FELBAMATE. [Concomitant]
     Active Substance: FELBAMATE
     Indication: EPILEPSY
  5. HYDROCORTISONE. [Concomitant]
     Active Substance: HYDROCORTISONE
     Indication: ADRENAL INSUFFICIENCY
     Dosage: LOW DOSE

REACTIONS (4)
  - Thrombocytopenia [Recovered/Resolved]
  - Pancreatitis [Recovered/Resolved]
  - Coagulopathy [Recovered/Resolved]
  - Depressed level of consciousness [Recovered/Resolved]
